FAERS Safety Report 9165052 (Version 1)
Quarter: 2013Q1

REPORT INFORMATION
  Report Type: Spontaneous
  Country: BR (occurrence: BR)
  Receive Date: 20130315
  Receipt Date: 20130315
  Transmission Date: 20140127
  Serious: Yes (Disabling, Other)
  Sender: FDA-Public Use
  Company Number: BR-PFIZER INC-2012227828

PATIENT
  Age: 8 Year
  Sex: Male
  Weight: 33 kg

DRUGS (2)
  1. GEODON [Suspect]
     Indication: ATTENTION DEFICIT/HYPERACTIVITY DISORDER
     Dosage: 80 MG, 1X/DAY
     Route: 048
     Dates: start: 20120803
  2. RITALINA [Concomitant]
     Indication: ATTENTION DEFICIT/HYPERACTIVITY DISORDER
     Dosage: UNK

REACTIONS (13)
  - VIIth nerve paralysis [Unknown]
  - Dyskinesia [Unknown]
  - Ophthalmoplegia [Unknown]
  - Speech disorder [Unknown]
  - Tremor [Unknown]
  - Off label use [Unknown]
  - Decreased appetite [Unknown]
  - Vomiting [Not Recovered/Not Resolved]
  - Mood swings [Not Recovered/Not Resolved]
  - Anxiety [Unknown]
  - Abdominal pain upper [Unknown]
  - Chest pain [Unknown]
  - Abdominal pain [Unknown]
